FAERS Safety Report 23794530 (Version 1)
Quarter: 2024Q2

REPORT INFORMATION
  Report Type: Spontaneous
  Country: US (occurrence: US)
  Receive Date: 20240429
  Receipt Date: 20240429
  Transmission Date: 20240716
  Serious: Yes (Hospitalization, Other)
  Sender: FDA-Public Use
  Company Number: US-ARGENX-2024-ARGX-US001509

PATIENT

DRUGS (1)
  1. VYVGART [Suspect]
     Active Substance: EFGARTIGIMOD ALFA-FCAB
     Indication: Myasthenia gravis
     Dosage: UNK
     Route: 042

REACTIONS (9)
  - Fall [Recovered/Resolved]
  - Myasthenia gravis crisis [Unknown]
  - Diverticulitis [Recovered/Resolved]
  - Tongue movement disturbance [Recovered/Resolved]
  - Muscle fatigue [Recovered/Resolved]
  - Brain fog [Not Recovered/Not Resolved]
  - Fall [Unknown]
  - Ill-defined disorder [Not Recovered/Not Resolved]
  - Off label use [Unknown]

NARRATIVE: CASE EVENT DATE: 20240302
